FAERS Safety Report 7074223-X (Version None)
Quarter: 2010Q4

REPORT INFORMATION
  Report Type: 
  Country: None (occurrence: None)
  Receive Date: 20101029
  Receipt Date: 20101018
  Transmission Date: 20110411
  Serious: Yes (Death)
  Sender: FDA-Public Use
  Company Number: ES-ROCHE-734877

PATIENT
  Sex: Male
  Weight: 81 kg

DRUGS (4)
  1. CAPECITABINE [Suspect]
     Indication: PRODUCT USED FOR UNKNOWN INDICATION
     Dosage: DOSE: 1300
     Route: 048
  2. EPIRUBICIN [Suspect]
     Indication: PRODUCT USED FOR UNKNOWN INDICATION
     Route: 042
     Dates: start: 20091110, end: 20100204
  3. OXALIPLATINE [Suspect]
     Indication: PRODUCT USED FOR UNKNOWN INDICATION
     Dosage: DOSE: 250
     Route: 042
     Dates: start: 20091110, end: 20100204
  4. DEXAMETHASONE [Concomitant]
     Route: 048

REACTIONS (1)
  - ASTHENIA [None]
